FAERS Safety Report 6839554-4 (Version None)
Quarter: 2010Q3

REPORT INFORMATION
  Report Type: 
  Country: None (occurrence: None)
  Receive Date: 20100714
  Receipt Date: 20100205
  Transmission Date: 20110219
  Serious: No
  Sender: FDA-Public Use
  Company Number: A0843255A

PATIENT
  Age: 35 Year
  Sex: Male

DRUGS (2)
  1. FLOVENT [Suspect]
     Dosage: 2PUFF TWICE PER DAY
     Route: 048
     Dates: start: 20100118
  2. LIPITOR [Concomitant]

REACTIONS (2)
  - ABDOMINAL TENDERNESS [None]
  - MEDICATION ERROR [None]
